FAERS Safety Report 21682544 (Version 1)
Quarter: 2022Q4

REPORT INFORMATION
  Report Type: Spontaneous
  Country: CH (occurrence: CH)
  Receive Date: 20221205
  Receipt Date: 20221205
  Transmission Date: 20230113
  Serious: Yes (Hospitalization, Other)
  Sender: FDA-Public Use
  Company Number: None

PATIENT
  Age: 62 Year
  Sex: Male

DRUGS (14)
  1. PIPERACILLIN SODIUM\TAZOBACTAM SODIUM [Suspect]
     Active Substance: PIPERACILLIN SODIUM\TAZOBACTAM SODIUM
     Dosage: PIPERACILLIN / TAZOBACTAM EINMALIG AM 01.06.2022 ; IN TOTAL
     Route: 065
     Dates: start: 20220601, end: 20220601
  2. DAFALGAN [Suspect]
     Active Substance: ACETAMINOPHEN
     Dosage: 500 MG, 1-1-1-0 3X/DAY
     Route: 048
     Dates: end: 20220601
  3. BACTRIM [Suspect]
     Active Substance: SULFAMETHOXAZOLE\TRIMETHOPRIM
     Dosage: 1-1-1-0
     Route: 048
     Dates: start: 20220507, end: 20220601
  4. IBUPROFEN [Suspect]
     Active Substance: IBUPROFEN
     Dosage: 400 MG, 3X/DAY 1-1-1-0
     Route: 048
     Dates: end: 20220601
  5. AMOXICILLIN\CLAVULANIC ACID [Suspect]
     Active Substance: AMOXICILLIN\CLAVULANIC ACID
     Dosage: 1 DF
     Route: 065
     Dates: start: 20220502, end: 20220516
  6. AMOXICILLIN\CLAVULANIC ACID [Suspect]
     Active Substance: AMOXICILLIN\CLAVULANIC ACID
     Dosage: 1 DF
     Route: 065
     Dates: start: 20220519, end: 20220519
  7. PANTOPRAZOLE SODIUM [Suspect]
     Active Substance: PANTOPRAZOLE SODIUM
     Dosage: 40 MG, 1X/DAY 1-0-0-0
     Route: 048
     Dates: end: 20220607
  8. XARELTO [Suspect]
     Active Substance: RIVAROXABAN
     Dosage: 10 MG, 1X/DAY 0-0-1-0
     Route: 048
     Dates: end: 20220601
  9. KEFZOL [Suspect]
     Active Substance: CEFAZOLIN SODIUM
     Dosage: 1 DF
     Route: 065
     Dates: start: 20220520, end: 20220529
  10. KEFZOL [Suspect]
     Active Substance: CEFAZOLIN SODIUM
     Dosage: 1 DF
     Route: 065
     Dates: start: 20220602, end: 20220603
  11. NOVALGIN (METAMIZOLE SODIUM) [Concomitant]
     Active Substance: METAMIZOLE SODIUM
     Dosage: 1000 MG, 2-2-2-2 EVERY 6 H
     Route: 048
     Dates: start: 20220602
  12. NALOXONE HYDROCHLORIDE\OXYCODONE HYDROCHLORIDE [Concomitant]
     Active Substance: NALOXONE HYDROCHLORIDE\OXYCODONE HYDROCHLORIDE
     Dosage: 1 DF
     Route: 048
     Dates: start: 20220602, end: 20220614
  13. OXYCODONE HYDROCHLORIDE [Concomitant]
     Active Substance: OXYCODONE HYDROCHLORIDE
     Dosage: 5 MG, AS NEEDED
     Route: 048
     Dates: start: 20220602
  14. ENOXAPARIN SODIUM [Concomitant]
     Active Substance: ENOXAPARIN SODIUM
     Dosage: 40 MG, DAILY
     Route: 058
     Dates: start: 20220602

REACTIONS (1)
  - Drug-induced liver injury [Recovering/Resolving]

NARRATIVE: CASE EVENT DATE: 20220601
